FAERS Safety Report 6405672-8 (Version None)
Quarter: 2009Q4

REPORT INFORMATION
  Report Type: 
  Country: None (occurrence: None)
  Receive Date: 20091019
  Receipt Date: 20091012
  Transmission Date: 20100525
  Serious: Yes (Other)
  Sender: FDA-Public Use
  Company Number: B0598321A

PATIENT
  Age: 48 Year
  Sex: Female
  Weight: 76 kg

DRUGS (4)
  1. IMIGRAN [Suspect]
     Indication: MIGRAINE
     Route: 058
     Dates: start: 19911204
  2. CAFERGOT [Concomitant]
     Route: 065
     Dates: end: 19911201
  3. DIPROSONE [Concomitant]
     Route: 061
  4. DIPROSALIC [Concomitant]
     Route: 061

REACTIONS (2)
  - MALAISE [None]
  - NAUSEA [None]
